FAERS Safety Report 4991291-7 (Version None)
Quarter: 2006Q2

REPORT INFORMATION
  Report Type: 
  Country: None (occurrence: None)
  Receive Date: 20060428
  Receipt Date: 20060417
  Transmission Date: 20061013
  Serious: Yes (Other)
  Sender: FDA-Public Use
  Company Number: 2005168298

PATIENT
  Sex: Male

DRUGS (3)
  1. VIAGRA [Suspect]
     Indication: ERECTILE DYSFUNCTION
     Dates: start: 20020101
  2. METFORMIN [Concomitant]
  3. INSULIN [Concomitant]

REACTIONS (4)
  - DIABETIC EYE DISEASE [None]
  - DRUG INEFFECTIVE [None]
  - OCULAR VASCULAR DISORDER [None]
  - VISUAL FIELD DEFECT [None]
